FAERS Safety Report 21776756 (Version 3)
Quarter: 2023Q1

REPORT INFORMATION
  Report Type: Spontaneous
  Country: FR (occurrence: FR)
  Receive Date: 20221226
  Receipt Date: 20230316
  Transmission Date: 20230418
  Serious: Yes (Life-Threatening, Hospitalization, Disabling, Other)
  Sender: FDA-Public Use
  Company Number: FR-PFIZER INC-PV202200126024

PATIENT
  Age: 13 Year
  Sex: Male
  Weight: 68 kg

DRUGS (2)
  1. ENBREL [Suspect]
     Active Substance: ETANERCEPT
     Indication: Axial spondyloarthritis
     Dosage: UNK, EVERY 15 DAYS
     Route: 065
     Dates: start: 201201, end: 202212
  2. ENBREL [Suspect]
     Active Substance: ETANERCEPT
     Indication: Juvenile spondyloarthritis
     Dosage: UNK
     Route: 065

REACTIONS (3)
  - Hodgkin^s disease [Not Recovered/Not Resolved]
  - Middle insomnia [Not Recovered/Not Resolved]
  - Off label use [Unknown]

NARRATIVE: CASE EVENT DATE: 20120101
